FAERS Safety Report 15888673 (Version 1)
Quarter: 2019Q1

REPORT INFORMATION
  Report Type: Spontaneous
  Country: US (occurrence: US)
  Receive Date: 20190129
  Receipt Date: 20190129
  Transmission Date: 20190417
  Serious: No
  Sender: FDA-Public Use
  Company Number: None

PATIENT
  Age: 67 Year
  Sex: Male

DRUGS (7)
  1. METOPROLOL. [Concomitant]
     Active Substance: METOPROLOL
  2. LASIX [Concomitant]
     Active Substance: FUROSEMIDE
  3. TRANDOLAPRIL. [Concomitant]
     Active Substance: TRANDOLAPRIL
  4. LIPITOR [Concomitant]
     Active Substance: ATORVASTATIN CALCIUM
  5. LISINOPRIL. [Concomitant]
     Active Substance: LISINOPRIL
  6. JANUVIA [Suspect]
     Active Substance: SITAGLIPTIN PHOSPHATE
  7. PANTOPRAZOLE [Concomitant]
     Active Substance: PANTOPRAZOLE

REACTIONS (1)
  - Wrong patient received product [None]
